FAERS Safety Report 7872149-2 (Version None)
Quarter: 2011Q4

REPORT INFORMATION
  Report Type: 
  Country: None (occurrence: None)
  Receive Date: 20111029
  Receipt Date: 20110315
  Transmission Date: 20120403
  Serious: No
  Sender: FDA-Public Use
  Company Number: US-AMGEN-USASP2011014395

PATIENT
  Sex: Female

DRUGS (1)
  1. ENBREL [Suspect]
     Indication: RHEUMATOID ARTHRITIS
     Dosage: 50 MG, Q2WK
     Dates: start: 20060601

REACTIONS (9)
  - BLISTER [None]
  - IMPAIRED HEALING [None]
  - INJECTION SITE PAIN [None]
  - PAIN IN EXTREMITY [None]
  - INJECTION SITE HAEMATOMA [None]
  - URINE ODOUR ABNORMAL [None]
  - RHEUMATOID ARTHRITIS [None]
  - INCISION SITE ABSCESS [None]
  - POLLAKIURIA [None]
